FAERS Safety Report 4876424-5 (Version None)
Quarter: 2005Q4

REPORT INFORMATION
  Report Type: 
  Country: None (occurrence: None)
  Receive Date: 20051206
  Receipt Date: 20051027
  Transmission Date: 20060501
  Serious: Yes (Other)
  Sender: FDA-Public Use
  Company Number: USA0510110291

PATIENT
  Sex: Male

DRUGS (12)
  1. PROZAC [Suspect]
     Indication: BIPOLAR I DISORDER
     Dosage: 80 MG
     Dates: start: 19870101, end: 20050628
  2. CYMBALTA [Suspect]
     Indication: BIPOLAR I DISORDER
     Dosage: 60 MG
     Dates: start: 20051004
  3. PRILOSEC [Concomitant]
  4. PREVACID [Concomitant]
  5. KLONOPIN [Concomitant]
  6. XANAX [Concomitant]
  7. ZOLOFT [Concomitant]
  8. WELLBUTRIN [Concomitant]
  9. SEROQUEL [Concomitant]
  10. LITHIUM [Concomitant]
  11. QUESTRAN [Concomitant]
  12. RISPERDAL [Concomitant]

REACTIONS (14)
  - APPENDICITIS PERFORATED [None]
  - AUTOIMMUNE DISORDER [None]
  - CRYING [None]
  - DIARRHOEA [None]
  - DRUG INEFFECTIVE [None]
  - FEELING ABNORMAL [None]
  - GASTRIC OPERATION [None]
  - HAEMORRHAGE [None]
  - MAJOR DEPRESSION [None]
  - MANIA [None]
  - PROSTATITIS [None]
  - UNEMPLOYMENT [None]
  - URINARY TRACT INFECTION [None]
  - VASCULAR PURPURA [None]
